FAERS Safety Report 11281599 (Version 2)
Quarter: 2015Q3

REPORT INFORMATION
  Report Type: Spontaneous
  Country: FR (occurrence: FR)
  Receive Date: 20150717
  Receipt Date: 20150827
  Transmission Date: 20151125
  Serious: Yes (Hospitalization)
  Sender: FDA-Public Use
  Company Number: FR-JNJFOC-20150703276

PATIENT
  Age: 56 Year
  Sex: Male

DRUGS (8)
  1. STELARA [Suspect]
     Active Substance: USTEKINUMAB
     Indication: VOGT-KOYANAGI-HARADA SYNDROME
     Route: 058
  2. REMICADE [Suspect]
     Active Substance: INFLIXIMAB
     Indication: VOGT-KOYANAGI-HARADA SYNDROME
     Route: 042
     Dates: start: 20150130
  3. REMICADE [Suspect]
     Active Substance: INFLIXIMAB
     Indication: VOGT-KOYANAGI-HARADA SYNDROME
     Route: 042
     Dates: start: 20150116
  4. STELARA [Suspect]
     Active Substance: USTEKINUMAB
     Indication: VOGT-KOYANAGI-HARADA SYNDROME
     Dosage: AT WEEK 2
     Route: 058
  5. STELARA [Suspect]
     Active Substance: USTEKINUMAB
     Indication: VOGT-KOYANAGI-HARADA SYNDROME
     Dosage: AT WEEK 4
     Route: 058
  6. CORTANCYL [Suspect]
     Active Substance: PREDNISONE
     Indication: VOGT-KOYANAGI-HARADA SYNDROME
     Route: 048
     Dates: start: 2007
  7. STELARA [Suspect]
     Active Substance: USTEKINUMAB
     Indication: VOGT-KOYANAGI-HARADA SYNDROME
     Dosage: AT WEEK 0
     Route: 058
     Dates: start: 201406
  8. REMICADE [Suspect]
     Active Substance: INFLIXIMAB
     Indication: VOGT-KOYANAGI-HARADA SYNDROME
     Route: 042
     Dates: start: 20150226

REACTIONS (2)
  - Pneumocystis jirovecii pneumonia [Recovering/Resolving]
  - Product use issue [Unknown]

NARRATIVE: CASE EVENT DATE: 201406
